FAERS Safety Report 11772053 (Version 1)
Quarter: 2015Q4

REPORT INFORMATION
  Report Type: Spontaneous
  Country: GB (occurrence: GB)
  Receive Date: 20151124
  Receipt Date: 20151124
  Transmission Date: 20160304
  Serious: Yes (Disabling)
  Sender: FDA-Public Use
  Company Number: GB-JNJFOC-20151116319

PATIENT
  Age: 82 Year
  Sex: Male
  Weight: 63 kg

DRUGS (8)
  1. SIMVASTATIN. [Concomitant]
     Active Substance: SIMVASTATIN
     Dosage: DOSE 1
     Route: 065
     Dates: start: 20150430
  2. LEVODOPA [Concomitant]
     Active Substance: LEVODOPA
     Dosage: DOSE 1
     Route: 065
  3. BENSERAZIDE HYDROCHLORIDE [Concomitant]
     Active Substance: BENSERAZIDE HYDROCHLORIDE
     Route: 065
  4. OMEPRAZOLE. [Concomitant]
     Active Substance: OMEPRAZOLE
     Route: 065
     Dates: start: 20150430
  5. CANAGLIFLOZIN [Suspect]
     Active Substance: CANAGLIFLOZIN
     Indication: PRODUCT USED FOR UNKNOWN INDICATION
     Route: 065
     Dates: start: 20151009
  6. CO-BENELDOPA [Concomitant]
     Active Substance: BENSERAZIDE HYDROCHLORIDE\LEVODOPA
     Route: 065
     Dates: start: 20150902
  7. INDAPAMIDE. [Concomitant]
     Active Substance: INDAPAMIDE
     Dosage: DOSE 1
     Route: 065
     Dates: start: 20150430
  8. EMOLLIN [Concomitant]
     Dosage: DOSAGE TEXT USE AS DIRECTED
     Route: 065
     Dates: start: 20150430

REACTIONS (8)
  - Polydipsia [Recovered/Resolved]
  - Abnormal behaviour [Recovered/Resolved]
  - Thirst [Recovered/Resolved]
  - Decreased appetite [Recovered/Resolved]
  - Tension [Recovered/Resolved]
  - Parkinson^s disease [Recovered/Resolved]
  - Musculoskeletal stiffness [Recovered/Resolved]
  - Fear [Recovered/Resolved]

NARRATIVE: CASE EVENT DATE: 20151009
